FAERS Safety Report 5925474-6 (Version None)
Quarter: 2008Q4

REPORT INFORMATION
  Report Type: 
  Country: None (occurrence: None)
  Receive Date: 20081016
  Receipt Date: 20081006
  Transmission Date: 20090506
  Serious: Yes (Hospitalization)
  Sender: FDA-Public Use
  Company Number: 2008-03775

PATIENT
  Age: 68 Year
  Sex: Female

DRUGS (2)
  1. VELCADE [Suspect]
     Indication: MULTIPLE MYELOMA
     Dosage: 2 MG
     Dates: start: 20080117
  2. FORTECORTIN [Concomitant]

REACTIONS (2)
  - HYPONATRAEMIA [None]
  - OLIGURIA [None]
